FAERS Safety Report 7389623-8 (Version None)
Quarter: 2011Q2

REPORT INFORMATION
  Report Type: 
  Country: None (occurrence: None)
  Receive Date: 20110401
  Receipt Date: 20110318
  Transmission Date: 20111010
  Serious: Yes (Hospitalization, Disabling)
  Sender: FDA-Public Use
  Company Number: DE-AMGEN-DEUNI2011010806

PATIENT
  Age: 72 Year
  Sex: Female

DRUGS (8)
  1. PANTOZOL [Concomitant]
     Dosage: 40 MG, UNK
     Route: 048
  2. NATEGLINIDE [Concomitant]
     Dosage: 120 MG, UNK
     Route: 048
  3. METFORMIN HCL [Concomitant]
     Dosage: 850 MG, BID
     Route: 048
  4. SIMVASTATIN [Concomitant]
     Dosage: 40 UNK, UNK
     Route: 048
  5. ASPIRIN [Concomitant]
     Dosage: 100 MG, UNK
     Route: 048
  6. CANDESARTAN [Concomitant]
     Dosage: 4 MG, UNK
     Route: 048
  7. ROSIGLITAZONE [Concomitant]
     Dosage: 45 MG, UNK
     Route: 048
  8. ROMIPLOSTIM [Suspect]
     Indication: IDIOPATHIC THROMBOCYTOPENIC PURPURA
     Dosage: 300 A?G, QWK
     Route: 058
     Dates: start: 20090705

REACTIONS (5)
  - CEREBRAL ISCHAEMIA [None]
  - DEEP VEIN THROMBOSIS [None]
  - WHITE BLOOD CELL COUNT INCREASED [None]
  - CEREBROVASCULAR ACCIDENT [None]
  - HAEMOGLOBIN DECREASED [None]
